FAERS Safety Report 7503000-8 (Version None)
Quarter: 2011Q2

REPORT INFORMATION
  Report Type: 
  Country: None (occurrence: None)
  Receive Date: 20110525
  Receipt Date: 20100925
  Transmission Date: 20111010
  Serious: No
  Sender: FDA-Public Use
  Company Number: US-NOVEN-ALL1-2010-05071

PATIENT
  Sex: Male
  Weight: 18.141 kg

DRUGS (4)
  1. DAYTRANA [Suspect]
     Dosage: UNK MG, 1X/DAY:QD (1/2 OF A 15 MG PATCH)
     Route: 062
     Dates: start: 20080101, end: 20091201
  2. DAYTRANA [Suspect]
     Dosage: UNK MG, 1X/DAY:QD (1/2 OF A 15 MG PATCH)
     Route: 062
     Dates: start: 20100201
  3. DAYTRANA [Suspect]
     Dosage: UNK MG, 1X/DAY:QD (1/2 OF A 10 MG PATCH)
     Route: 062
     Dates: start: 20061201, end: 20080101
  4. DAYTRANA [Suspect]
     Dosage: 10 MG, 1X/DAY:QD
     Route: 062
     Dates: start: 20091201, end: 20100201

REACTIONS (6)
  - ACCIDENTAL EXPOSURE [None]
  - WRONG TECHNIQUE IN DRUG USAGE PROCESS [None]
  - DRUG PRESCRIBING ERROR [None]
  - OFF LABEL USE [None]
  - DRUG EFFECT INCREASED [None]
  - PRODUCT QUALITY ISSUE [None]
